FAERS Safety Report 18237940 (Version 2)
Quarter: 2021Q2

REPORT INFORMATION
  Report Type: Spontaneous
  Country: DE (occurrence: DE)
  Receive Date: 20200907
  Receipt Date: 20210405
  Transmission Date: 20210717
  Serious: Yes (Hospitalization)
  Sender: FDA-Public Use
  Company Number: DE-ACCORD-199645

PATIENT
  Age: 14 Year
  Sex: Male
  Weight: 39 kg

DRUGS (11)
  1. EINSALPHA [Concomitant]
     Active Substance: ALFACALCIDOL
     Indication: CHRONIC KIDNEY DISEASE-MINERAL AND BONE DISORDER
     Dosage: STRENGTH: 2 UG / ML DROPS
     Route: 048
     Dates: start: 20100630
  2. TACROLIMUS. [Suspect]
     Active Substance: TACROLIMUS
     Indication: IMMUNOSUPPRESSION
     Dosage: DAILY DOSE: 5.2 MG MILLGRAM(S) EVERY DAYS 2 SEPARATED DOSES
     Route: 048
     Dates: start: 201703
  3. BICANORM [Concomitant]
     Active Substance: SODIUM BICARBONATE
     Indication: RENAL TUBULAR ACIDOSIS
     Dosage: DAILY DOSE: 3 G GRAM(S) EVERY DAYS 3 SEPARATED DOSES
     Route: 048
     Dates: start: 201009
  4. VIGANTOL OIL [Concomitant]
     Indication: VITAMIN D DEFICIENCY
     Dosage: DAILY DOSE: 8 GTT DROP(S) EVERY DAYS
     Route: 048
     Dates: start: 201006
  5. MYCOPHENOLIC ACID. [Suspect]
     Active Substance: MYCOPHENOLIC ACID
     Indication: RENAL TRANSPLANT
     Dosage: DAILY DOSE: 800 MG MILLGRAM(S) EVERY DAYS 2 SEPARATED DOSES
     Route: 048
     Dates: start: 201011
  6. MAGNESIUM VERLA N [Concomitant]
     Active Substance: MAGNESIUM
     Indication: BLOOD MAGNESIUM ABNORMAL
     Dosage: 2 SEPARATED DOSES
     Route: 048
     Dates: start: 20180205
  7. AMLODIPINE [Concomitant]
     Active Substance: AMLODIPINE BESYLATE
     Indication: HYPERTENSION
     Dosage: DAILY DOSE: 10 MG MILLGRAM(S) EVERY DAYS 2 SEPARATED DOSES
     Route: 048
     Dates: start: 20170901
  8. FERRUM HAUSMANN [Concomitant]
     Indication: IRON DEFICIENCY
     Dosage: STRENGTH: 50 MG / ML
     Route: 048
     Dates: start: 201907
  9. PREDNISOLONE. [Suspect]
     Active Substance: PREDNISOLONE
     Indication: RENAL TRANSPLANT
     Route: 048
     Dates: start: 201101
  10. REDUCTO?SPECIAL [Concomitant]
     Indication: CHRONIC KIDNEY DISEASE-MINERAL AND BONE DISORDER
     Dosage: 602MG / 360MG 1? 0 ?1 SINCE AT LEAST 06.2019
     Route: 048
     Dates: start: 201906
  11. FUSIDIC ACID [Concomitant]
     Active Substance: FUSIDIC ACID
     Indication: STOMA SITE ERYTHEMA
     Route: 003

REACTIONS (6)
  - Large intestine infection [Recovered/Resolved]
  - Erythema [Recovered/Resolved]
  - Gastrointestinal pain [Recovered/Resolved]
  - Gastroenteritis adenovirus [Recovered/Resolved]
  - Gastroenteritis [Recovered/Resolved]
  - Vomiting [Recovered/Resolved]

NARRATIVE: CASE EVENT DATE: 20190922
